FAERS Safety Report 25299980 (Version 1)
Quarter: 2025Q2

REPORT INFORMATION
  Report Type: Spontaneous
  Country: US (occurrence: US)
  Receive Date: 20250512
  Receipt Date: 20250512
  Transmission Date: 20250717
  Serious: Yes (Other)
  Sender: CSL BEHRING
  Company Number: US-BEH-2025204281

PATIENT
  Age: 17 Year
  Sex: Male
  Weight: 65.76 kg

DRUGS (1)
  1. HUMATE-P [Suspect]
     Active Substance: HUMAN COAGULATION FACTOR VIII/VON WILLEBRAND FACTOR COMPLEX
     Indication: Von Willebrand^s disease
     Route: 042
     Dates: start: 202202

REACTIONS (4)
  - Haemorrhage [Unknown]
  - Joint injury [Unknown]
  - Haematoma [Unknown]
  - Weight decreased [Unknown]

NARRATIVE: CASE EVENT DATE: 20250422
